FAERS Safety Report 12517094 (Version 3)
Quarter: 2016Q3

REPORT INFORMATION
  Report Type: Spontaneous
  Country: US (occurrence: US)
  Receive Date: 20160630
  Receipt Date: 20160810
  Transmission Date: 20161109
  Serious: Yes (Hospitalization, Other)
  Sender: FDA-Public Use
  Company Number: US-PFIZER INC-2016315832

PATIENT
  Age: 63 Year
  Sex: Male

DRUGS (1)
  1. MORPHINE SULFATE. [Suspect]
     Active Substance: MORPHINE SULFATE
     Dosage: UNK

REACTIONS (3)
  - Pneumonia aspiration [Recovered/Resolved]
  - Overdose [Unknown]
  - Leukoencephalopathy [Recovered/Resolved]
